FAERS Safety Report 6399019-3 (Version None)
Quarter: 2009Q4

REPORT INFORMATION
  Report Type: 
  Country: None (occurrence: None)
  Receive Date: 20091008
  Receipt Date: 20091008
  Transmission Date: 20100525
  Serious: Yes (Hospitalization, Disabling, Other)
  Sender: FDA-Public Use
  Company Number: None

PATIENT
  Age: 17 Year
  Sex: Female
  Weight: 95.2554 kg

DRUGS (1)
  1. DEPO-PROVERA [Suspect]
     Indication: CONTRACEPTION
     Dosage: 150 MG/ML INJECTION EVERY 3 MONTHS
     Dates: start: 20051007, end: 20091007

REACTIONS (7)
  - ABASIA [None]
  - ASTHENIA [None]
  - DYSSTASIA [None]
  - OSTEOPOROSIS [None]
  - PAIN [None]
  - POISONING [None]
  - RHEUMATOID ARTHRITIS [None]
